FAERS Safety Report 5155397-4 (Version None)
Quarter: 2006Q4

REPORT INFORMATION
  Report Type: 
  Country: None (occurrence: None)
  Receive Date: 20061121
  Receipt Date: 20061115
  Transmission Date: 20070319
  Serious: Yes (Hospitalization)
  Sender: FDA-Public Use
  Company Number: AU-SANOFI-SYNTHELABO-F01200602340

PATIENT

DRUGS (4)
  1. RADIOTHERAPY [Concomitant]
  2. GEMCITABINE [Suspect]
     Route: 042
  3. OXALIPLATIN [Suspect]
     Indication: PANCREATIC CARCINOMA
     Route: 042
  4. FLUOROURACIL [Suspect]
     Route: 042

REACTIONS (3)
  - GASTRIC ULCER [None]
  - GASTROINTESTINAL HAEMORRHAGE [None]
  - RECTAL HAEMORRHAGE [None]
